FAERS Safety Report 18552637 (Version 1)
Quarter: 2020Q4

REPORT INFORMATION
  Report Type: Report from Study
  Country: BR (occurrence: BR)
  Receive Date: 20201127
  Receipt Date: 20201127
  Transmission Date: 20210114
  Serious: Yes (Other)
  Sender: FDA-Public Use
  Company Number: BR-TEVA-2020-BR-1851139

PATIENT
  Age: 46 Year
  Sex: Female

DRUGS (7)
  1. ELIQUIS [Concomitant]
     Active Substance: APIXABAN
  2. SELOZOK [Concomitant]
     Active Substance: METOPROLOL SUCCINATE
  3. PREGABALIN. [Concomitant]
     Active Substance: PREGABALIN
  4. TRAMADOL. [Concomitant]
     Active Substance: TRAMADOL
  5. COPAXONE [Suspect]
     Active Substance: GLATIRAMER ACETATE
     Indication: MULTIPLE SCLEROSIS
     Route: 065
  6. DULOXETINE. [Concomitant]
     Active Substance: DULOXETINE
  7. BACLOFEN. [Concomitant]
     Active Substance: BACLOFEN

REACTIONS (16)
  - Multiple sclerosis [Not Recovered/Not Resolved]
  - Memory impairment [Not Recovered/Not Resolved]
  - Injection site pain [Unknown]
  - Abdominal pain [Unknown]
  - Injection site haematoma [Recovered/Resolved]
  - Burning sensation [Not Recovered/Not Resolved]
  - Cerebral atrophy [Not Recovered/Not Resolved]
  - Condition aggravated [Not Recovered/Not Resolved]
  - Tachycardia [Recovered/Resolved]
  - Paraesthesia [Not Recovered/Not Resolved]
  - Injection site nodule [Not Recovered/Not Resolved]
  - Discomfort [Not Recovered/Not Resolved]
  - Limb discomfort [Not Recovered/Not Resolved]
  - Head discomfort [Not Recovered/Not Resolved]
  - Product dose omission issue [Unknown]
  - Drug ineffective [Unknown]

NARRATIVE: CASE EVENT DATE: 20201116
